FAERS Safety Report 13828091 (Version 1)
Quarter: 2017Q3

REPORT INFORMATION
  Report Type: Report from Study
  Country: US (occurrence: US)
  Receive Date: 20170803
  Receipt Date: 20170803
  Transmission Date: 20171127
  Serious: Yes (Other)
  Sender: FDA-Public Use
  Company Number: US-BEH-2017082446

PATIENT
  Age: 7 Year
  Sex: Male
  Weight: 47.62 kg

DRUGS (1)
  1. HIZENTRA [Suspect]
     Active Substance: HUMAN IMMUNOGLOBULIN G
     Indication: PRIMARY IMMUNODEFICIENCY SYNDROME
     Dosage: 5 G, QW
     Route: 058
     Dates: start: 20160315

REACTIONS (4)
  - Loss of consciousness [Recovered/Resolved]
  - Headache [Recovered/Resolved]
  - Neurological symptom [Recovered/Resolved]
  - Vomiting [Recovered/Resolved]
